FAERS Safety Report 12918310 (Version 1)
Quarter: 2016Q4

REPORT INFORMATION
  Report Type: Spontaneous
  Country: US (occurrence: US)
  Receive Date: 20161107
  Receipt Date: 20161107
  Transmission Date: 20170207
  Serious: Yes (Other)
  Sender: FDA-Public Use
  Company Number: US-TEVA-710176USA

PATIENT
  Sex: Female
  Weight: 83.99 kg

DRUGS (2)
  1. RALOXIFENE. [Suspect]
     Active Substance: RALOXIFENE
     Route: 065
     Dates: start: 2015
  2. CALCIUM [Concomitant]
     Active Substance: CALCIUM
     Dosage: 500 MILLIGRAM DAILY;
     Route: 065

REACTIONS (3)
  - Nephrolithiasis [Unknown]
  - Muscle spasms [Unknown]
  - Hot flush [Unknown]
